FAERS Safety Report 23524840 (Version 5)
Quarter: 2025Q2

REPORT INFORMATION
  Report Type: Report from Study
  Country: JP (occurrence: JP)
  Receive Date: 20240215
  Receipt Date: 20250519
  Transmission Date: 20250717
  Serious: Yes (Life-Threatening, Hospitalization, Other)
  Sender: NOVARTIS
  Company Number: JP-002147023-NVSJ2024JP002036

PATIENT
  Age: 59 Year
  Sex: Male
  Weight: 64.6 kg

DRUGS (12)
  1. LUTATHERA [Suspect]
     Active Substance: LUTETIUM OXODOTREOTIDE LU-177
     Indication: Pancreatic neuroendocrine tumour
     Route: 042
     Dates: start: 20220616, end: 20220616
  2. LUTATHERA [Suspect]
     Active Substance: LUTETIUM OXODOTREOTIDE LU-177
     Route: 042
     Dates: start: 20220908, end: 20220908
  3. LUTATHERA [Suspect]
     Active Substance: LUTETIUM OXODOTREOTIDE LU-177
     Route: 042
     Dates: start: 20221110, end: 20221110
  4. LUTATHERA [Suspect]
     Active Substance: LUTETIUM OXODOTREOTIDE LU-177
     Route: 042
     Dates: start: 20230112, end: 20230112
  5. KYTRIL [Concomitant]
     Active Substance: GRANISETRON HYDROCHLORIDE
     Indication: Prophylaxis of nausea and vomiting
     Route: 065
  6. KYTRIL [Concomitant]
     Active Substance: GRANISETRON HYDROCHLORIDE
     Route: 065
  7. KYTRIL [Concomitant]
     Active Substance: GRANISETRON HYDROCHLORIDE
     Route: 065
  8. KYTRIL [Concomitant]
     Active Substance: GRANISETRON HYDROCHLORIDE
     Route: 065
  9. LANREOTIDE ACETATE [Concomitant]
     Active Substance: LANREOTIDE ACETATE
     Indication: Pancreatic neuroendocrine tumour
     Route: 065
     Dates: start: 20230612, end: 20230612
  10. OCTREOTIDE ACETATE [Concomitant]
     Active Substance: OCTREOTIDE ACETATE
     Indication: Pancreatic neuroendocrine tumour
     Route: 065
     Dates: start: 20230601, end: 20240209
  11. ZANOSAR [Concomitant]
     Active Substance: STREPTOZOCIN
     Indication: Pancreatic neuroendocrine tumour
     Route: 065
     Dates: start: 20230920, end: 20231105
  12. FLUOROURACIL [Concomitant]
     Active Substance: FLUOROURACIL
     Indication: Pancreatic neuroendocrine tumour
     Route: 065
     Dates: start: 20230920, end: 20231105

REACTIONS (4)
  - Hypoglycaemia [Recovering/Resolving]
  - Insulinoma [Unknown]
  - Pancreatic neuroendocrine tumour [Unknown]
  - Malignant neoplasm progression [Unknown]

NARRATIVE: CASE EVENT DATE: 20230601
